FAERS Safety Report 11311811 (Version 1)
Quarter: 2015Q3

REPORT INFORMATION
  Report Type: Spontaneous
  Country: US (occurrence: US)
  Receive Date: 20150727
  Receipt Date: 20150727
  Transmission Date: 20151125
  Serious: Yes (Other)
  Sender: FDA-Public Use
  Company Number: US-JNJFOC-20150709663

PATIENT
  Age: 37 Year
  Sex: Female

DRUGS (1)
  1. XARELTO [Suspect]
     Active Substance: RIVAROXABAN
     Indication: PRODUCT USED FOR UNKNOWN INDICATION
     Route: 048

REACTIONS (6)
  - Headache [Recovering/Resolving]
  - Rhinorrhoea [Recovering/Resolving]
  - Neck pain [Recovering/Resolving]
  - Transient ischaemic attack [Unknown]
  - Lacrimation increased [Recovering/Resolving]
  - Dizziness [Unknown]
